FAERS Safety Report 7578308-0 (Version None)
Quarter: 2011Q2

REPORT INFORMATION
  Report Type: 
  Country: None (occurrence: None)
  Receive Date: 20110628
  Receipt Date: 20110615
  Transmission Date: 20111010
  Serious: Yes (Other)
  Sender: FDA-Public Use
  Company Number: US-BAYER-2011-052584

PATIENT
  Sex: Female

DRUGS (1)
  1. YAZ [Suspect]

REACTIONS (4)
  - TREMOR [None]
  - BLOOD COPPER INCREASED [None]
  - AMMONIA INCREASED [None]
  - ALANINE AMINOTRANSFERASE INCREASED [None]
